FAERS Safety Report 18070148 (Version 1)
Quarter: 2020Q3

REPORT INFORMATION
  Report Type: Spontaneous
  Country: FR (occurrence: FR)
  Receive Date: 20200727
  Receipt Date: 20200727
  Transmission Date: 20201103
  Serious: Yes (Hospitalization, Other)
  Sender: FDA-Public Use
  Company Number: FR-TEVA-2020-FR-1805081

PATIENT
  Age: 24 Year
  Sex: Female

DRUGS (2)
  1. XANAX [Suspect]
     Active Substance: ALPRAZOLAM
     Dosage: UP TO 5?6 TABLETS / DAY
     Route: 048
     Dates: start: 2016
  2. TRAMADOL BASE [Suspect]
     Active Substance: TRAMADOL
     Dosage: 4 TO 8 TABLETS / DAY
     Route: 048
     Dates: start: 2018

REACTIONS (1)
  - Drug dependence [Not Recovered/Not Resolved]

NARRATIVE: CASE EVENT DATE: 2016
